FAERS Safety Report 6517897-1 (Version None)
Quarter: 2009Q4

REPORT INFORMATION
  Report Type: 
  Country: None (occurrence: None)
  Receive Date: 20091223
  Receipt Date: 20091223
  Transmission Date: 20100525
  Serious: No
  Sender: FDA-Public Use
  Company Number: None

PATIENT
  Age: 55 Year
  Sex: Female

DRUGS (1)
  1. LAMOTRIGINE [Suspect]
     Indication: CONVULSION
     Dosage: 2 TABS IN AM, 1 TAB AT NOON AND 2 TABS IN EVENING
     Dates: start: 20090919, end: 20090920

REACTIONS (5)
  - CONVULSION [None]
  - COORDINATION ABNORMAL [None]
  - DYSPHONIA [None]
  - GAIT DISTURBANCE [None]
  - SPEECH DISORDER [None]
